FAERS Safety Report 5294295-2 (Version None)
Quarter: 2007Q2

REPORT INFORMATION
  Report Type: 
  Country: None (occurrence: None)
  Receive Date: 20070412
  Receipt Date: 20070329
  Transmission Date: 20071010
  Serious: Yes (Hospitalization)
  Sender: FDA-Public Use
  Company Number: NO-JNJFOC-20070400313

PATIENT
  Age: 21 Year
  Sex: Female
  Weight: 82 kg

DRUGS (5)
  1. INFLIXIMAB [Suspect]
     Route: 042
  2. INFLIXIMAB [Suspect]
     Indication: CROHN'S DISEASE
     Route: 042
  3. ZYRTEC [Concomitant]
  4. CONTRACEPTIVE [Concomitant]
  5. AZATHIOPRINE SODIUM [Concomitant]

REACTIONS (1)
  - PSORIASIS [None]
